FAERS Safety Report 15583140 (Version 4)
Quarter: 2021Q3

REPORT INFORMATION
  Report Type: Spontaneous
  Country: CA (occurrence: CA)
  Receive Date: 20181105
  Receipt Date: 20210826
  Transmission Date: 20211014
  Serious: Yes (Other)
  Sender: FDA-Public Use
  Company Number: CA-TEVA-2018-CA-972344

PATIENT
  Age: 70 Year
  Sex: Female

DRUGS (17)
  1. TIOTROPIUM [Suspect]
     Active Substance: TIOTROPIUM
     Indication: PRODUCT USED FOR UNKNOWN INDICATION
     Route: 065
  2. SYMBICORT [Suspect]
     Active Substance: BUDESONIDE\FORMOTEROL FUMARATE DIHYDRATE
     Indication: PRODUCT USED FOR UNKNOWN INDICATION
     Route: 055
  3. FUROSEMIDE. [Suspect]
     Active Substance: FUROSEMIDE
     Indication: PRODUCT USED FOR UNKNOWN INDICATION
     Dosage: 40 MILLIGRAM DAILY;
     Route: 065
  4. PREDNISONE. [Suspect]
     Active Substance: PREDNISONE
     Indication: PNEUMONIA
     Route: 042
  5. PREDNISONE. [Suspect]
     Active Substance: PREDNISONE
     Indication: PRODUCT USED FOR UNKNOWN INDICATION
     Route: 042
  6. PREDNISONE. [Suspect]
     Active Substance: PREDNISONE
     Indication: PRODUCT USED FOR UNKNOWN INDICATION
     Dosage: 50 MILLIGRAM DAILY;
     Route: 065
  7. SALBUTAMOL [Suspect]
     Active Substance: ALBUTEROL
     Indication: PRODUCT USED FOR UNKNOWN INDICATION
     Dosage: 100 MICROGRAM DAILY;
     Route: 065
  8. PREDNISONE. [Suspect]
     Active Substance: PREDNISONE
     Indication: PNEUMONIA
     Route: 048
  9. MEPOLIZUMAB [Suspect]
     Active Substance: MEPOLIZUMAB
     Indication: ASTHMA
     Route: 042
  10. PREDNISONE. [Suspect]
     Active Substance: PREDNISONE
     Route: 065
  11. PREDNISONE. [Suspect]
     Active Substance: PREDNISONE
     Route: 065
  12. MOXIFLOXACIN HYDROCHLORIDE. [Suspect]
     Active Substance: MOXIFLOXACIN HYDROCHLORIDE
     Indication: PRODUCT USED FOR UNKNOWN INDICATION
     Dosage: 400 MILLIGRAM DAILY;
     Route: 065
  13. PREDNISONE. [Suspect]
     Active Substance: PREDNISONE
     Route: 065
  14. PREDNISONE. [Suspect]
     Active Substance: PREDNISONE
     Route: 065
  15. APO?CICLESONIDE [Suspect]
     Active Substance: CICLESONIDE
     Indication: PRODUCT USED FOR UNKNOWN INDICATION
     Dosage: 50 MICROGRAM DAILY;
     Route: 065
  16. BUDESONIDE/FORMOTEROL FUMARATE [Suspect]
     Active Substance: BUDESONIDE\FORMOTEROL FUMARATE
     Indication: PRODUCT USED FOR UNKNOWN INDICATION
     Dosage: 200 MICROGRAM DAILY;
     Route: 065
  17. PREDNISONE. [Suspect]
     Active Substance: PREDNISONE
     Route: 048

REACTIONS (12)
  - Asthma [Recovered/Resolved]
  - Diabetes mellitus [Recovered/Resolved]
  - Dyspnoea [Recovered/Resolved]
  - Bronchitis [Recovered/Resolved]
  - Respiratory tract congestion [Recovered/Resolved]
  - Depression [Recovered/Resolved]
  - Eosinophil count increased [Recovered/Resolved]
  - Chest discomfort [Recovered/Resolved]
  - Drug ineffective [Recovered/Resolved]
  - Thyroid disorder [Recovered/Resolved]
  - Oropharyngeal pain [Recovered/Resolved]
  - Pneumonia [Recovered/Resolved]
